FAERS Safety Report 15490474 (Version 8)
Quarter: 2019Q4

REPORT INFORMATION
  Report Type: Report from Study
  Country: US (occurrence: US)
  Receive Date: 20181011
  Receipt Date: 20191121
  Transmission Date: 20200122
  Serious: Yes (Life-Threatening, Hospitalization, Other)
  Sender: FDA-Public Use
  Company Number: US-ACTELION-A-NJ2016-143378

PATIENT
  Age: 49 Year
  Sex: Female
  Weight: 82.99 kg

DRUGS (7)
  1. CITALOPRAM [Concomitant]
     Active Substance: CITALOPRAM HYDROBROMIDE
  2. METHADONE [Suspect]
     Active Substance: METHADONE HYDROCHLORIDE
     Indication: PRODUCT USED FOR UNKNOWN INDICATION
     Dosage: UNK
     Route: 065
     Dates: start: 20180815, end: 20180815
  3. CLOTRIMAZOLE AND BETAMETHASONE [Concomitant]
     Active Substance: BETAMETHASONE\CLOTRIMAZOLE
  4. QUETIAPINE. [Concomitant]
     Active Substance: QUETIAPINE
  5. LATUDA [Concomitant]
     Active Substance: LURASIDONE HYDROCHLORIDE
  6. OMEPRAZOLE. [Concomitant]
     Active Substance: OMEPRAZOLE
  7. OPSUMIT [Suspect]
     Active Substance: MACITENTAN
     Indication: PULMONARY ARTERIAL HYPERTENSION
     Dosage: 10 MG, QD
     Route: 048
     Dates: start: 20160120

REACTIONS (41)
  - Fibrin D dimer increased [Unknown]
  - Thrombocytopenia [Recovered/Resolved]
  - Pulmonary hypertension [Recovering/Resolving]
  - White blood cell count decreased [Not Recovered/Not Resolved]
  - Behaviour disorder due to a general medical condition [Recovered/Resolved with Sequelae]
  - Hypomagnesaemia [Recovered/Resolved]
  - Splenomegaly [Unknown]
  - Hepatic cirrhosis [Recovered/Resolved]
  - Respiratory failure [Recovered/Resolved]
  - Mental disorder [Recovered/Resolved with Sequelae]
  - Blood calcium decreased [Unknown]
  - Hypophosphataemia [Recovered/Resolved]
  - Dyspnoea [Unknown]
  - Portal hypertension [Unknown]
  - Chronic obstructive pulmonary disease [Not Recovered/Not Resolved]
  - Oxygen saturation decreased [Unknown]
  - Loss of consciousness [Recovered/Resolved with Sequelae]
  - Encephalopathy [Recovered/Resolved]
  - Electrolyte imbalance [Recovered/Resolved]
  - Pneumonia [Unknown]
  - Hypokalaemia [Not Recovered/Not Resolved]
  - Dysarthria [Recovered/Resolved]
  - Condition aggravated [Unknown]
  - Tobacco abuse [Unknown]
  - Lethargy [Recovered/Resolved]
  - Aspiration [Recovered/Resolved]
  - Anaemia [Not Recovered/Not Resolved]
  - Hypersomnia [Unknown]
  - Tobacco user [Unknown]
  - Respiratory rate increased [Recovered/Resolved]
  - Headache [Recovered/Resolved]
  - Haemoglobin decreased [Not Recovered/Not Resolved]
  - Overdose [Recovered/Resolved with Sequelae]
  - PO2 decreased [Unknown]
  - Acute respiratory failure [Recovered/Resolved]
  - Platelet count decreased [Not Recovered/Not Resolved]
  - Confusional state [Recovered/Resolved]
  - Hypocalcaemia [Recovered/Resolved]
  - Suicide attempt [Unknown]
  - Red blood cell count decreased [Unknown]
  - Blood phosphorus decreased [Unknown]

NARRATIVE: CASE EVENT DATE: 20160224
